FAERS Safety Report 9171799 (Version 1)
Quarter: 2013Q1

REPORT INFORMATION
  Report Type: Spontaneous
  Country: US (occurrence: None)
  Receive Date: 20130311
  Receipt Date: 20130311
  Transmission Date: 20140127
  Serious: Yes (Other)
  Sender: FDA-Public Use
  Company Number: 2013034902

PATIENT
  Sex: Female
  Weight: 65.32 kg

DRUGS (34)
  1. ZEMAIRA (ALPHA-1 PROTEINASE INHIBITOR (HUMAN)) [Suspect]
     Indication: ALPHA-1 ANTI-TRYPSIN DEFICIENCY
     Dosage: 1X/WEEK, RATE: 4.9 ML/MIN INTRAVENOUS (NOT OTHERWISE SPECIFIED))
     Route: 042
  2. POTASSIUM CI ER (POTASSIUM CHLORIDE) [Concomitant]
  3. CIPRO (CIPROFLOXACIN) [Concomitant]
  4. CEFUROXIME (CEFUROXIME) [Concomitant]
  5. AVELOX (MOXIFLOXACIN HYDROCHLORIDE) [Concomitant]
  6. AMOXICILLIN (AMOXICILLIN) [Concomitant]
  7. DIPHENHYDRAMINE (DIPHENHYDRAMINE) [Concomitant]
  8. HEPARIN (HEPARIN) [Concomitant]
  9. SODIUM CHLORIDE (SODIUM CHORIDE) [Concomitant]
  10. EPI-PEN (EPINEPHRINE) [Concomitant]
  11. L-M-X (LIDOCAINE) [Concomitant]
  12. OXYGEN (OXYGEN) [Concomitant]
  13. MEDROL (METHYLPREDNISOLONE ACETATE) [Concomitant]
  14. VANCOMYCIN (VANCOMYCIN) [Concomitant]
  15. CEFEPIME (CEFEPIME) [Concomitant]
  16. PROAIR (PROCATEROL HYDROCHLORIDE) [Concomitant]
  17. LASIX (FUROSEMIDE) [Concomitant]
  18. OXYCODONE-ACETAMINOPHEN (OXYCOCET) [Concomitant]
  19. METHYLPREDNISOLONE (METHYLPREDNISOLONE) [Concomitant]
  20. MUCINEX (GUAIFENESIN) [Concomitant]
  21. AUGMENTIN (AUGMENTIN [Concomitant]
  22. HYDROCODONE-CHLORPHENIRAM (TUSSIONEX PENNKINETIC) [Concomitant]
  23. MUPIROCIN (MUPIROCIN) [Concomitant]
  24. DOXYCYCLINE HYCLATE (DOXYCYCLINE HYCLATE) [Concomitant]
  25. DOMPERIDONE (DOMPERIDONE) [Concomitant]
  26. PRILOSEC [Concomitant]
  27. PROMETHAZINE (PROMETHAZINE) [Concomitant]
  28. ZOFRAN (ONDANSETRON) [Concomitant]
  29. ALBUTEROL (SALBUTAMOL) [Concomitant]
  30. PREDNISONE (PREDNISONE) [Concomitant]
  31. CATHFLO ACTIVASE (ALTEPLASE) [Concomitant]
  32. PAXIL (PAROXETINE HYDROCHLORIDE) [Concomitant]
  33. IPRAT-ALBUT (SALBUTAMOL W/IPRATROPIUM) [Concomitant]
  34. LORAZEPAM (LORAZEPAM) [Concomitant]

REACTIONS (3)
  - Fatigue [None]
  - Cough [None]
  - Lung infection [None]
